FAERS Safety Report 17168657 (Version 1)
Quarter: 2019Q4

REPORT INFORMATION
  Report Type: Spontaneous
  Country: JP (occurrence: JP)
  Receive Date: 20191218
  Receipt Date: 20191218
  Transmission Date: 20200122
  Serious: Yes (Life-Threatening, Other)
  Sender: FDA-Public Use
  Company Number: JP-ACCORD-160871

PATIENT
  Age: 39 Year
  Sex: Female

DRUGS (1)
  1. CLOZAPINE. [Suspect]
     Active Substance: CLOZAPINE
     Indication: SCHIZOPHRENIA
     Dosage: INCREASED TO 50 MG/DAY AFTER A WEEK, 25 TO 50 MG/DAY, MORE THAN 250 MG/DAY

REACTIONS (4)
  - Generalised tonic-clonic seizure [Recovering/Resolving]
  - Treatment failure [Unknown]
  - Eosinophilia [Recovering/Resolving]
  - Somnolence [Recovering/Resolving]
